FAERS Safety Report 5988507-7 (Version None)
Quarter: 2008Q4

REPORT INFORMATION
  Report Type: 
  Country: None (occurrence: None)
  Receive Date: 20081210
  Receipt Date: 20081205
  Transmission Date: 20090506
  Serious: No
  Sender: FDA-Public Use
  Company Number: GB-WYE-G02572008

PATIENT
  Sex: Male

DRUGS (6)
  1. RAPAMUNE [Suspect]
     Indication: IMMUNOSUPPRESSION
     Route: 048
     Dates: start: 20061213
  2. CO-DYDRAMOL [Concomitant]
     Indication: HYPERTENSION
     Dosage: 1-2, QID
     Route: 048
  3. LOSARTAN POTASSIUM [Concomitant]
     Indication: HYPERTENSION
     Route: 048
     Dates: start: 20070827
  4. ATENOLOL [Concomitant]
     Indication: HYPERTENSION
     Route: 048
     Dates: start: 20080728
  5. DOXYCYCLINE [Suspect]
     Indication: ACNE
     Dosage: UNKNOWN
  6. AZATHIOPRINE [Concomitant]
     Indication: IMMUNOSUPPRESSION
     Route: 048
     Dates: start: 20020917

REACTIONS (4)
  - ACNE [None]
  - BLOOD CREATINE PHOSPHOKINASE INCREASED [None]
  - MUSCULAR WEAKNESS [None]
  - TENDERNESS [None]
